FAERS Safety Report 14969770 (Version 1)
Quarter: 2018Q2

REPORT INFORMATION
  Report Type: Report from Study
  Country: ES (occurrence: ES)
  Receive Date: 20180604
  Receipt Date: 20180604
  Transmission Date: 20180711
  Serious: Yes (Death, Hospitalization)
  Sender: FDA-Public Use
  Company Number: ES-ASTRAZENECA-2018SE08835

PATIENT
  Age: 27792 Day
  Sex: Female

DRUGS (56)
  1. PLACEBO [Suspect]
     Active Substance: UNSPECIFIED INGREDIENT
     Indication: NON-SMALL CELL LUNG CANCER
     Dosage: EVERY TWO WEEKS
     Route: 042
     Dates: start: 20150827, end: 20150827
  2. PLACEBO [Suspect]
     Active Substance: UNSPECIFIED INGREDIENT
     Indication: NON-SMALL CELL LUNG CANCER
     Dosage: EVERY TWO WEEKS
     Route: 042
     Dates: start: 20151112, end: 20151112
  3. PLACEBO [Suspect]
     Active Substance: UNSPECIFIED INGREDIENT
     Indication: NON-SMALL CELL LUNG CANCER
     Dosage: EVERY TWO WEEKS
     Route: 042
     Dates: start: 20151229, end: 20151229
  4. PLACEBO [Suspect]
     Active Substance: UNSPECIFIED INGREDIENT
     Indication: NON-SMALL CELL LUNG CANCER
     Dosage: EVERY TWO WEEKS
     Route: 042
     Dates: start: 20160509, end: 20160509
  5. PLACEBO [Suspect]
     Active Substance: UNSPECIFIED INGREDIENT
     Indication: NON-SMALL CELL LUNG CANCER
     Dosage: EVERY TWO WEEKS
     Route: 042
     Dates: start: 20170515, end: 20170515
  6. PLACEBO [Suspect]
     Active Substance: UNSPECIFIED INGREDIENT
     Indication: NON-SMALL CELL LUNG CANCER
     Dosage: EVERY TWO WEEKS
     Route: 042
     Dates: start: 20170612, end: 20170612
  7. PLACEBO [Suspect]
     Active Substance: UNSPECIFIED INGREDIENT
     Indication: NON-SMALL CELL LUNG CANCER
     Dosage: EVERY TWO WEEKS
     Route: 042
     Dates: start: 20170904, end: 20170904
  8. PLACEBO [Suspect]
     Active Substance: UNSPECIFIED INGREDIENT
     Indication: NON-SMALL CELL LUNG CANCER
     Dosage: EVERY TWO WEEKS
     Route: 042
     Dates: start: 20171030, end: 20171030
  9. DEXAMETHASONE. [Concomitant]
     Active Substance: DEXAMETHASONE
     Indication: COUGH
     Route: 048
     Dates: start: 20151028
  10. NOLOTIL (METAMIZOLE MAGNESIUM) [Concomitant]
     Active Substance: METAMIZOLE MAGNESIUM
     Indication: HERPES ZOSTER
     Dosage: 575.0MG AS REQUIRED
     Route: 048
     Dates: start: 20160509
  11. PLACEBO [Suspect]
     Active Substance: UNSPECIFIED INGREDIENT
     Indication: NON-SMALL CELL LUNG CANCER
     Dosage: EVERY TWO WEEKS
     Route: 042
     Dates: start: 20160804, end: 20160804
  12. PLACEBO [Suspect]
     Active Substance: UNSPECIFIED INGREDIENT
     Indication: NON-SMALL CELL LUNG CANCER
     Dosage: EVERY TWO WEEKS
     Route: 042
     Dates: start: 20170207, end: 20170207
  13. PLACEBO [Suspect]
     Active Substance: UNSPECIFIED INGREDIENT
     Indication: NON-SMALL CELL LUNG CANCER
     Dosage: EVERY TWO WEEKS
     Route: 042
     Dates: start: 20170320, end: 20170320
  14. PLACEBO [Suspect]
     Active Substance: UNSPECIFIED INGREDIENT
     Indication: NON-SMALL CELL LUNG CANCER
     Dosage: EVERY TWO WEEKS
     Route: 042
     Dates: start: 20170724, end: 20170724
  15. PLACEBO [Suspect]
     Active Substance: UNSPECIFIED INGREDIENT
     Indication: NON-SMALL CELL LUNG CANCER
     Dosage: EVERY TWO WEEKS
     Route: 042
     Dates: start: 20171120, end: 20171120
  16. METAMIZOLE [Concomitant]
     Active Substance: METAMIZOLE
     Indication: PAIN PROPHYLAXIS
     Dosage: 575.0MG AS REQUIRED
     Route: 048
  17. PLACEBO [Suspect]
     Active Substance: UNSPECIFIED INGREDIENT
     Indication: NON-SMALL CELL LUNG CANCER
     Dosage: EVERY TWO WEEKS
     Route: 042
     Dates: start: 20150917, end: 20150917
  18. PLACEBO [Suspect]
     Active Substance: UNSPECIFIED INGREDIENT
     Indication: NON-SMALL CELL LUNG CANCER
     Dosage: EVERY TWO WEEKS
     Route: 042
     Dates: start: 20151001, end: 20151001
  19. PLACEBO [Suspect]
     Active Substance: UNSPECIFIED INGREDIENT
     Indication: NON-SMALL CELL LUNG CANCER
     Dosage: EVERY TWO WEEKS
     Route: 042
     Dates: start: 20170220, end: 20170220
  20. PLACEBO [Suspect]
     Active Substance: UNSPECIFIED INGREDIENT
     Indication: NON-SMALL CELL LUNG CANCER
     Dosage: EVERY TWO WEEKS
     Route: 042
     Dates: start: 20170306, end: 20170306
  21. PLACEBO [Suspect]
     Active Substance: UNSPECIFIED INGREDIENT
     Indication: NON-SMALL CELL LUNG CANCER
     Dosage: EVERY TWO WEEKS
     Route: 042
     Dates: start: 20171204, end: 20171204
  22. PLACEBO [Suspect]
     Active Substance: UNSPECIFIED INGREDIENT
     Indication: NON-SMALL CELL LUNG CANCER
     Dosage: EVERY TWO WEEKS
     Route: 042
     Dates: start: 20151029, end: 20151029
  23. PLACEBO [Suspect]
     Active Substance: UNSPECIFIED INGREDIENT
     Indication: NON-SMALL CELL LUNG CANCER
     Dosage: EVERY TWO WEEKS
     Route: 042
     Dates: start: 20160114, end: 20160114
  24. PLACEBO [Suspect]
     Active Substance: UNSPECIFIED INGREDIENT
     Indication: NON-SMALL CELL LUNG CANCER
     Dosage: EVERY TWO WEEKS
     Route: 042
     Dates: start: 20160128, end: 20160128
  25. PLACEBO [Suspect]
     Active Substance: UNSPECIFIED INGREDIENT
     Indication: NON-SMALL CELL LUNG CANCER
     Dosage: EVERY TWO WEEKS
     Route: 042
     Dates: start: 20160211, end: 20160211
  26. PLACEBO [Suspect]
     Active Substance: UNSPECIFIED INGREDIENT
     Indication: NON-SMALL CELL LUNG CANCER
     Dosage: EVERY TWO WEEKS
     Route: 042
     Dates: start: 20160225, end: 20160225
  27. PLACEBO [Suspect]
     Active Substance: UNSPECIFIED INGREDIENT
     Indication: NON-SMALL CELL LUNG CANCER
     Dosage: EVERY TWO WEEKS
     Route: 042
     Dates: start: 20160310, end: 20160310
  28. PLACEBO [Suspect]
     Active Substance: UNSPECIFIED INGREDIENT
     Indication: NON-SMALL CELL LUNG CANCER
     Dosage: EVERY TWO WEEKS
     Route: 042
     Dates: start: 20171218, end: 20171218
  29. PLACEBO [Suspect]
     Active Substance: UNSPECIFIED INGREDIENT
     Indication: NON-SMALL CELL LUNG CANCER
     Dosage: EVERY TWO WEEKS
     Route: 042
     Dates: start: 20160721, end: 20160721
  30. PLACEBO [Suspect]
     Active Substance: UNSPECIFIED INGREDIENT
     Indication: NON-SMALL CELL LUNG CANCER
     Dosage: EVERY TWO WEEKS
     Route: 042
     Dates: start: 20170626, end: 20170626
  31. PLACEBO [Suspect]
     Active Substance: UNSPECIFIED INGREDIENT
     Indication: NON-SMALL CELL LUNG CANCER
     Route: 042
     Dates: start: 20170807, end: 20170807
  32. PLACEBO [Suspect]
     Active Substance: UNSPECIFIED INGREDIENT
     Indication: NON-SMALL CELL LUNG CANCER
     Dosage: EVERY TWO WEEKS
     Route: 042
     Dates: start: 20170918, end: 20170918
  33. INDACATEROL [Concomitant]
     Active Substance: INDACATEROL
     Indication: DYSPNOEA
     Dosage: QD
     Route: 055
  34. PREGABALIN. [Concomitant]
     Active Substance: PREGABALIN
     Indication: HERPES ZOSTER
     Route: 048
     Dates: start: 20160425
  35. PLACEBO [Suspect]
     Active Substance: UNSPECIFIED INGREDIENT
     Indication: NON-SMALL CELL LUNG CANCER
     Dosage: EVERY TWO WEEKS
     Route: 042
     Dates: start: 20160328, end: 20160328
  36. PLACEBO [Suspect]
     Active Substance: UNSPECIFIED INGREDIENT
     Indication: NON-SMALL CELL LUNG CANCER
     Dosage: EVERY TWO WEEKS
     Route: 042
     Dates: start: 20160411, end: 20160411
  37. PLACEBO [Suspect]
     Active Substance: UNSPECIFIED INGREDIENT
     Indication: NON-SMALL CELL LUNG CANCER
     Dosage: EVERY TWO WEEKS
     Route: 042
     Dates: start: 20160523, end: 20160523
  38. PLACEBO [Suspect]
     Active Substance: UNSPECIFIED INGREDIENT
     Indication: NON-SMALL CELL LUNG CANCER
     Dosage: EVERY TWO WEEKS
     Route: 042
     Dates: start: 20160623, end: 20160623
  39. PLACEBO [Suspect]
     Active Substance: UNSPECIFIED INGREDIENT
     Indication: NON-SMALL CELL LUNG CANCER
     Dosage: EVERY TWO WEEKS
     Route: 042
     Dates: start: 20160707, end: 20160707
  40. PLACEBO [Suspect]
     Active Substance: UNSPECIFIED INGREDIENT
     Indication: NON-SMALL CELL LUNG CANCER
     Dosage: EVERY TWO WEEKS
     Route: 042
     Dates: start: 20160818, end: 20160818
  41. PLACEBO [Suspect]
     Active Substance: UNSPECIFIED INGREDIENT
     Indication: NON-SMALL CELL LUNG CANCER
     Dosage: EVERY TWO WEEKS
     Route: 042
     Dates: start: 20170502, end: 20170502
  42. PLACEBO [Suspect]
     Active Substance: UNSPECIFIED INGREDIENT
     Indication: NON-SMALL CELL LUNG CANCER
     Dosage: EVERY TWO WEEKS
     Route: 042
     Dates: start: 20170529, end: 20170529
  43. PLACEBO [Suspect]
     Active Substance: UNSPECIFIED INGREDIENT
     Indication: NON-SMALL CELL LUNG CANCER
     Dosage: EVERY TWO WEEKS
     Route: 042
     Dates: start: 20151015, end: 20151015
  44. PLACEBO [Suspect]
     Active Substance: UNSPECIFIED INGREDIENT
     Indication: NON-SMALL CELL LUNG CANCER
     Dosage: EVERY TWO WEEKS
     Route: 042
     Dates: start: 20160425, end: 20160425
  45. PLACEBO [Suspect]
     Active Substance: UNSPECIFIED INGREDIENT
     Indication: NON-SMALL CELL LUNG CANCER
     Dosage: EVERY TWO WEEKS
     Route: 042
     Dates: start: 20170403, end: 20170403
  46. PLACEBO [Suspect]
     Active Substance: UNSPECIFIED INGREDIENT
     Indication: NON-SMALL CELL LUNG CANCER
     Dosage: EVERY TWO WEEKS
     Route: 042
     Dates: start: 20170821, end: 20170821
  47. PLACEBO [Suspect]
     Active Substance: UNSPECIFIED INGREDIENT
     Indication: NON-SMALL CELL LUNG CANCER
     Dosage: EVERY TWO WEEKS
     Route: 042
     Dates: start: 20171002, end: 20171002
  48. PLACEBO [Suspect]
     Active Substance: UNSPECIFIED INGREDIENT
     Indication: NON-SMALL CELL LUNG CANCER
     Dosage: EVERY TWO WEEKS
     Route: 042
     Dates: start: 20171016, end: 20171016
  49. ENALAPRIL [Concomitant]
     Active Substance: ENALAPRIL
     Indication: HYPERTENSION
     Dosage: QD
     Route: 048
  50. LEVOFLOXACIN. [Concomitant]
     Active Substance: LEVOFLOXACIN
     Indication: NASOPHARYNGITIS
     Route: 048
     Dates: start: 20171228
  51. PLACEBO [Suspect]
     Active Substance: UNSPECIFIED INGREDIENT
     Indication: NON-SMALL CELL LUNG CANCER
     Dosage: EVERY TWO WEEKS
     Route: 042
     Dates: start: 20151126, end: 20151126
  52. PLACEBO [Suspect]
     Active Substance: UNSPECIFIED INGREDIENT
     Indication: NON-SMALL CELL LUNG CANCER
     Dosage: EVERY TWO WEEKS
     Route: 042
     Dates: start: 20151210, end: 20151210
  53. PLACEBO [Suspect]
     Active Substance: UNSPECIFIED INGREDIENT
     Indication: NON-SMALL CELL LUNG CANCER
     Dosage: EVERY TWO WEEKS
     Route: 042
     Dates: start: 20160606, end: 20160606
  54. PLACEBO [Suspect]
     Active Substance: UNSPECIFIED INGREDIENT
     Indication: NON-SMALL CELL LUNG CANCER
     Dosage: EVERY TWO WEEKS
     Route: 042
     Dates: start: 20170417, end: 20170417
  55. PLACEBO [Suspect]
     Active Substance: UNSPECIFIED INGREDIENT
     Indication: NON-SMALL CELL LUNG CANCER
     Dosage: EVERY TWO WEEKS
     Route: 042
     Dates: start: 20170710, end: 20170710
  56. SIMVASTATIN. [Concomitant]
     Active Substance: SIMVASTATIN
     Indication: DYSLIPIDAEMIA
     Route: 048

REACTIONS (1)
  - Gastrointestinal haemorrhage [Fatal]

NARRATIVE: CASE EVENT DATE: 20180115
